FAERS Safety Report 12313793 (Version 1)
Quarter: 2016Q2

REPORT INFORMATION
  Report Type: Spontaneous
  Country: US (occurrence: US)
  Receive Date: 20160428
  Receipt Date: 20160428
  Transmission Date: 20160815
  Serious: No
  Sender: FDA-Public Use
  Company Number: US-009507513-1604USA010254

PATIENT
  Age: 26 Year
  Sex: Male

DRUGS (1)
  1. BELSOMRA [Suspect]
     Active Substance: SUVOREXANT
     Indication: INSOMNIA
     Dosage: STRENGTH 20 MG, 1 TABLET DAILY
     Route: 048
     Dates: start: 201511

REACTIONS (2)
  - Drug dose omission [Unknown]
  - Insomnia [Unknown]

NARRATIVE: CASE EVENT DATE: 2016
